FAERS Safety Report 22319209 (Version 1)
Quarter: 2023Q2

REPORT INFORMATION
  Report Type: Spontaneous
  Country: CA (occurrence: CA)
  Receive Date: 20230515
  Receipt Date: 20230515
  Transmission Date: 20230722
  Serious: Yes (Life-Threatening, Hospitalization)
  Sender: FDA-Public Use
  Company Number: CA-TEVA-2023-CA-2886264

PATIENT
  Age: 39 Year
  Sex: Male

DRUGS (1)
  1. CEPHALEXIN [Suspect]
     Active Substance: CEPHALEXIN
     Indication: Cellulitis
     Dosage: 2000 MILLIGRAM DAILY;
     Route: 065

REACTIONS (10)
  - Acute kidney injury [Not Recovered/Not Resolved]
  - Hepatic failure [Not Recovered/Not Resolved]
  - Hepatomegaly [Not Recovered/Not Resolved]
  - Intensive care [Not Recovered/Not Resolved]
  - Jaundice [Not Recovered/Not Resolved]
  - Mechanical ventilation [Not Recovered/Not Resolved]
  - Oedema peripheral [Not Recovered/Not Resolved]
  - Portal hypertension [Not Recovered/Not Resolved]
  - Splenomegaly [Not Recovered/Not Resolved]
  - Liver function test abnormal [Not Recovered/Not Resolved]
